FAERS Safety Report 17279882 (Version 2)
Quarter: 2020Q1

REPORT INFORMATION
  Report Type: Spontaneous
  Country: US (occurrence: US)
  Receive Date: 20200116
  Receipt Date: 20200122
  Transmission Date: 20200409
  Serious: Yes (Other)
  Sender: FDA-Public Use
  Company Number: US-PFIZER INC-2020016457

PATIENT
  Age: 83 Year
  Sex: Female

DRUGS (2)
  1. DILANTIN [Suspect]
     Active Substance: PHENYTOIN
     Dosage: 60 MG, UNK(2 ADDITIONAL 30 MG OF DILANTIN)
  2. PHENYTOIN SODIUM. [Suspect]
     Active Substance: PHENYTOIN SODIUM
     Dosage: 100 OF GENERIC IN THE MORNING TAKE 100 OF THE GENERIC AT NIGHT

REACTIONS (5)
  - Seizure [Unknown]
  - Loss of consciousness [Unknown]
  - Bone disorder [Unknown]
  - Blood albumin decreased [Unknown]
  - Tibia fracture [Unknown]
